FAERS Safety Report 15864233 (Version 2)
Quarter: 2019Q1

REPORT INFORMATION
  Report Type: Spontaneous
  Country: CA (occurrence: CA)
  Receive Date: 20190124
  Receipt Date: 20190128
  Transmission Date: 20190417
  Serious: Yes (Other)
  Sender: FDA-Public Use
  Company Number: CA-PFIZER INC-2019027719

PATIENT

DRUGS (10)
  1. INFLIXIMAB HOSPIRA [Interacting]
     Active Substance: INFLIXIMAB
     Indication: JUVENILE IDIOPATHIC ARTHRITIS
     Dosage: UNK
     Route: 065
  2. LEFLUNOMIDE. [Interacting]
     Active Substance: LEFLUNOMIDE
     Indication: JUVENILE IDIOPATHIC ARTHRITIS
     Dosage: 20 MG, QD
     Route: 048
  3. ETANERCEPT [Interacting]
     Active Substance: ETANERCEPT
     Indication: JUVENILE IDIOPATHIC ARTHRITIS
     Dosage: UNK
     Route: 065
  4. ADALIMUMAB [Interacting]
     Active Substance: ADALIMUMAB
     Indication: JUVENILE IDIOPATHIC ARTHRITIS
     Dosage: UNK
     Route: 065
  5. PREDNISONE. [Interacting]
     Active Substance: PREDNISONE
     Indication: JUVENILE IDIOPATHIC ARTHRITIS
     Dosage: UNK
     Route: 065
  6. NAPROXEN. [Interacting]
     Active Substance: NAPROXEN
     Dosage: UNK
     Route: 065
  7. METHOTREXATE SODIUM. [Suspect]
     Active Substance: METHOTREXATE SODIUM
     Indication: JUVENILE IDIOPATHIC ARTHRITIS
     Dosage: 1 DF, WEEKLY
     Route: 058
  8. SULFASALAZINE. [Interacting]
     Active Substance: SULFASALAZINE
     Indication: JUVENILE IDIOPATHIC ARTHRITIS
     Dosage: UNK
     Route: 065
  9. METHOTREXATE SODIUM. [Interacting]
     Active Substance: METHOTREXATE SODIUM
     Dosage: 1 DF, WEEKLY
     Route: 058
  10. FOLIC ACID. [Interacting]
     Active Substance: FOLIC ACID
     Dosage: UNK
     Route: 065

REACTIONS (8)
  - Drug ineffective [Recovered/Resolved]
  - Drug interaction [Recovered/Resolved]
  - Drug effect incomplete [Recovered/Resolved]
  - Sacroiliitis [Recovered/Resolved]
  - Drug intolerance [Recovered/Resolved]
  - Alopecia [Recovered/Resolved]
  - Gastric disorder [Recovered/Resolved]
  - Polyarthritis [Recovered/Resolved]
